FAERS Safety Report 6045910-7 (Version None)
Quarter: 2009Q1

REPORT INFORMATION
  Report Type: 
  Country: None (occurrence: None)
  Receive Date: 20090116
  Receipt Date: 20090106
  Transmission Date: 20090719
  Serious: Yes (Death, Hospitalization)
  Sender: FDA-Public Use
  Company Number: RENA-1000353

PATIENT
  Age: 69 Year
  Sex: Male

DRUGS (11)
  1. RENAGEL [Suspect]
     Indication: HYPERPHOSPHATAEMIA
     Dosage: 0.25 G, TID, ORAL
     Route: 048
  2. CINACALCET HYDROCHLORIDE (REGPARA) (CINACALCET HYDROCHLORIDE) TABLET [Suspect]
     Indication: DRUG USE FOR UNKNOWN INDICATION
     Dosage: 25 MG, QD, ORAL
     Route: 048
  3. BAYASPIRIN (ACETYLSALICYLIC ACID) TABLET [Suspect]
     Indication: DRUG USE FOR UNKNOWN INDICATION
     Dosage: 100 MG, QD, ORAL
     Route: 048
  4. PURSENNID (SENNOSIDE A+B, SENNOSIDE A+B CALCIUM) TABLET [Suspect]
     Indication: DRUG USE FOR UNKNOWN INDICATION
     Dosage: 24 MG, TID, ORAL
     Route: 048
  5. WARFARIN SODIUM [Suspect]
     Indication: DRUG USE FOR UNKNOWN INDICATION
     Dosage: 2 MG, QD, ORAL
     Route: 048
  6. HALCION [Concomitant]
  7. SILECE (FLUNITRAZEPAM) TABLET [Concomitant]
  8. TAKEPRON (LANSOPRAZOLE) UNKNOWN [Concomitant]
  9. GASCON (DIMETICONE) UNKNOWN [Concomitant]
  10. GASMOTIN (MOSAPRIDE CITRATE) UNKNOWN [Concomitant]
  11. VITANEURIN (FURSULTIAMINE, HYDROXOCOBALAMIN ACETATE, PYRIDOXAL PHOSPHA [Concomitant]

REACTIONS (1)
  - GASTROINTESTINAL NECROSIS [None]
